FAERS Safety Report 6236679-1 (Version None)
Quarter: 2009Q2

REPORT INFORMATION
  Report Type: 
  Country: None (occurrence: None)
  Receive Date: 20090619
  Receipt Date: 20090327
  Transmission Date: 20091009
  Serious: No
  Sender: FDA-Public Use
  Company Number: US-ASTRAZENECA-2009UW03613

PATIENT
  Age: 64 Year
  Sex: Male
  Weight: 85.3 kg

DRUGS (3)
  1. ATACAND [Suspect]
     Route: 048
  2. CELEXA [Concomitant]
  3. SERTRALINE [Concomitant]

REACTIONS (2)
  - BLOOD PRESSURE INCREASED [None]
  - PALPITATIONS [None]
